FAERS Safety Report 9175823 (Version 3)
Quarter: 2013Q3

REPORT INFORMATION
  Report Type: Spontaneous
  Country: IE (occurrence: IE)
  Receive Date: 20130320
  Receipt Date: 20130731
  Transmission Date: 20140515
  Serious: Yes (Hospitalization, Other)
  Sender: FDA-Public Use
  Company Number: IE-VERTEX PHARMACEUTICALS INC.-2013-003844

PATIENT
  Age: 65 Year
  Sex: Female
  Weight: 82.6 kg

DRUGS (4)
  1. INCIVO [Suspect]
     Indication: HEPATITIS C
     Dosage: 750 MG, TID, TABLET
     Route: 048
     Dates: start: 20130122, end: 20130312
  2. COPEGUS [Suspect]
     Indication: HEPATITIS C
     Dosage: DOSAGE FORM: TABLETS
     Route: 048
     Dates: start: 20130122, end: 20130312
  3. PEGASYS [Suspect]
     Indication: HEPATITIS C
     Dosage: DOSAGE FORM: INJECTION
     Route: 058
     Dates: start: 20130122, end: 20130312
  4. BECLOMETHASONE INHALER [Concomitant]
     Indication: ASTHMA
     Dosage: DOSAGE FORM: INHALATION, 100UG DOSES
     Route: 055
     Dates: start: 20130226

REACTIONS (4)
  - Hepatic cirrhosis [Unknown]
  - Ascites [Recovered/Resolved]
  - Pleural effusion [Recovered/Resolved]
  - Oedema peripheral [Recovered/Resolved]
